FAERS Safety Report 14153085 (Version 2)
Quarter: 2017Q4

REPORT INFORMATION
  Report Type: Spontaneous
  Country: US (occurrence: US)
  Receive Date: 20171102
  Receipt Date: 20171228
  Transmission Date: 20180321
  Serious: Yes (Other)
  Sender: FDA-Public Use
  Company Number: US-BAYER-2017-211239

PATIENT
  Age: 39 Year
  Sex: Female
  Weight: 79.83 kg

DRUGS (4)
  1. MIRENA [Suspect]
     Active Substance: LEVONORGESTREL
     Dosage: UNK
  2. MIRENA [Suspect]
     Active Substance: LEVONORGESTREL
     Indication: CONTRACEPTION
     Dosage: 20 MG/24HR, CONT
     Route: 015
     Dates: start: 20171011, end: 20171018
  3. ZOLPIDEM [Concomitant]
     Active Substance: ZOLPIDEM\ZOLPIDEM TARTRATE
     Dosage: 5 MG, HS
     Route: 048
  4. CLONAZEPAM. [Concomitant]
     Active Substance: CLONAZEPAM
     Dosage: 1 DF, BID
     Route: 048

REACTIONS (6)
  - Post procedural haemorrhage [None]
  - Procedural pain [Not Recovered/Not Resolved]
  - Dyspareunia [None]
  - Vaginal haemorrhage [None]
  - Fatigue [None]
  - Menorrhagia [None]

NARRATIVE: CASE EVENT DATE: 201710
